FAERS Safety Report 5314526-X (Version None)
Quarter: 2007Q2

REPORT INFORMATION
  Report Type: 
  Country: None (occurrence: None)
  Receive Date: 20070427
  Receipt Date: 20070410
  Transmission Date: 20071010
  Serious: Yes (Hospitalization)
  Sender: FDA-Public Use
  Company Number: 2007RR-06838

PATIENT
  Age: 60 Year
  Sex: Female

DRUGS (7)
  1. CEPHALEXIN [Suspect]
  2. PREDNISOLONE [Concomitant]
  3. ATARAX [Concomitant]
  4. CLINDAMYCIN [Concomitant]
  5. BENADRYL [Concomitant]
  6. ACYCLOVIR [Concomitant]
  7. PREDNISONE CREAM [Concomitant]

REACTIONS (5)
  - BETA HAEMOLYTIC STREPTOCOCCAL INFECTION [None]
  - DISCOMFORT [None]
  - ENTEROCOCCAL INFECTION [None]
  - PEMPHIGOID [None]
  - STAPHYLOCOCCAL INFECTION [None]
